FAERS Safety Report 9170858 (Version 1)
Quarter: 2013Q1

REPORT INFORMATION
  Report Type: Spontaneous
  Country: IT (occurrence: None)
  Receive Date: 20130312
  Receipt Date: 20130312
  Transmission Date: 20140127
  Serious: Yes (Hospitalization)
  Sender: FDA-Public Use
  Company Number: FK201300779

PATIENT
  Age: 42 Year
  Sex: Female

DRUGS (4)
  1. OXALIPLATIN (MANUFACTURER UNKNOWN) (OXALIPLATIN) (OXALIPLATIN) [Suspect]
     Indication: RECTAL CANCER
     Dosage: 80, MG/MQ, INTRAVENOUS (NOT OTHERWISE SPECIFIED)
     Route: 042
     Dates: start: 20130102, end: 20130213
  2. IRINOTECAN HYDROCHLORIDE (IRINOTECAN HYDROCHLORIDE) [Concomitant]
  3. BEVACIZUMAB (BEVACIZUMAB) [Concomitant]
  4. FLUOROURACIL [Suspect]

REACTIONS (5)
  - Abdominal pain upper [None]
  - Feeling hot [None]
  - Pruritus [None]
  - Rash [None]
  - Sinus tachycardia [None]
